FAERS Safety Report 10528874 (Version 1)
Quarter: 2014Q4

REPORT INFORMATION
  Report Type: Spontaneous
  Country: GB (occurrence: GB)
  Receive Date: 20141020
  Receipt Date: 20141020
  Transmission Date: 20150528
  Serious: Yes (Other)
  Sender: FDA-Public Use
  Company Number: PHHY2014GB134196

PATIENT
  Age: 62 Year
  Sex: Male

DRUGS (8)
  1. ZAPONEX [Suspect]
     Active Substance: CLOZAPINE
     Indication: SCHIZOPHRENIA
     Dosage: 100MG MANE, 100MG AT LUNCH, 200MG NOCTE
     Route: 048
     Dates: start: 20041011
  2. CYCLOPHOSPHAMIDE. [Suspect]
     Active Substance: CYCLOPHOSPHAMIDE
     Indication: SARCOMA METASTATIC
     Dosage: A CYCLE EVERY 3 WEEKS
     Route: 065
  3. FLUOXETINE [Concomitant]
     Active Substance: FLUOXETINE\FLUOXETINE HYDROCHLORIDE
     Indication: DEPRESSION
     Dosage: 40 MG, QD
     Route: 065
  4. DOXORUBICIN [Suspect]
     Active Substance: DOXORUBICIN
     Indication: SARCOMA METASTATIC
     Dosage: A CYCLE EVERY 3 WEEKS
     Route: 065
  5. PREDNISOLONE. [Suspect]
     Active Substance: PREDNISOLONE
     Indication: SARCOMA METASTATIC
     Dosage: A CYCLE EVERY 3 WEEKS
     Route: 065
  6. GRANULOCYTE COLONY STIMULATING FACTOR [Concomitant]
     Active Substance: GRANULOCYTE COLONY-STIMULATING FACTOR NOS
     Indication: BONE MARROW FAILURE
     Dosage: UNK UKN, UNK
     Route: 065
     Dates: start: 20131125
  7. VINCRISTINE [Suspect]
     Active Substance: VINCRISTINE
     Indication: SARCOMA METASTATIC
     Dosage: A CYCLE EVERY 3 WEEKS
     Route: 065
  8. AMISULPRIDE [Concomitant]
     Active Substance: AMISULPRIDE
     Indication: SCHIZOPHRENIA
     Dosage: 300 MG, BID
     Route: 048

REACTIONS (8)
  - Sarcoma metastatic [Recovered/Resolved]
  - White blood cell count increased [Recovered/Resolved]
  - Leukopenia [Recovered/Resolved]
  - Neutropenia [Recovered/Resolved]
  - Product use issue [Not Recovered/Not Resolved]
  - Sarcoma [Not Recovered/Not Resolved]
  - White blood cell count decreased [Recovered/Resolved]
  - Neutrophil count increased [Recovered/Resolved]

NARRATIVE: CASE EVENT DATE: 201310
